FAERS Safety Report 23456814 (Version 1)
Quarter: 2024Q1

REPORT INFORMATION
  Report Type: Spontaneous
  Country: US (occurrence: US)
  Receive Date: 20240130
  Receipt Date: 20240130
  Transmission Date: 20240409
  Serious: No
  Sender: FDA-Public Use
  Company Number: US-PFIZER INC-PV202400011894

PATIENT
  Age: 53 Year
  Sex: Female

DRUGS (2)
  1. ZINC CHLORIDE [Suspect]
     Active Substance: ZINC CHLORIDE
     Dosage: UNK
  2. COMBIPATCH [Suspect]
     Active Substance: ESTRADIOL\NORETHINDRONE ACETATE
     Indication: Menopause
     Dosage: DOSE: 0.05/0.14 MILLIGRAM
     Route: 062

REACTIONS (1)
  - Vaginal haemorrhage [Recovered/Resolved]
